FAERS Safety Report 18910514 (Version 1)
Quarter: 2021Q1

REPORT INFORMATION
  Report Type: Spontaneous
  Country: US (occurrence: US)
  Receive Date: 20210218
  Receipt Date: 20210218
  Transmission Date: 20210420
  Serious: Yes (Hospitalization)
  Sender: FDA-Public Use
  Company Number: None

PATIENT
  Age: 75 Year
  Sex: Male
  Weight: 65.9 kg

DRUGS (3)
  1. YERVOY [Suspect]
     Active Substance: IPILIMUMAB
     Indication: MALIGNANT MELANOMA
     Dosage: ?          OTHER FREQUENCY:EVERY 3 WEEKS;?
     Route: 041
     Dates: start: 20200928, end: 20201130
  2. YERVOY [Concomitant]
     Active Substance: IPILIMUMAB
     Dates: start: 20200928, end: 20201130
  3. OPDIVO [Suspect]
     Active Substance: NIVOLUMAB

REACTIONS (10)
  - Decubitus ulcer [None]
  - Abdominal abscess [None]
  - Thrombocytopenia [None]
  - Intestinal perforation [None]
  - Hypokalaemia [None]
  - Cholelithiasis [None]
  - Ascites [None]
  - Anaemia [None]
  - Malnutrition [None]
  - Sepsis [None]

NARRATIVE: CASE EVENT DATE: 20201210
